FAERS Safety Report 9050495 (Version 1)
Quarter: 2013Q1

REPORT INFORMATION
  Report Type: Spontaneous
  Country: US (occurrence: US)
  Receive Date: 20130205
  Receipt Date: 20130205
  Transmission Date: 20140127
  Serious: Yes (Other)
  Sender: FDA-Public Use
  Company Number: US-JNJFOC-20130200812

PATIENT
  Age: 53 Year
  Sex: Female
  Weight: 92.97 kg

DRUGS (7)
  1. TRAMADOL [Suspect]
     Indication: PAIN
     Dosage: 3 TIMES A DAY
     Route: 048
  2. IBUPROFEN [Suspect]
     Indication: PAIN
     Dosage: 3 TIMES A DAY
     Route: 065
  3. LYRICA [Suspect]
     Indication: FIBROMYALGIA
     Dosage: 2 TIMES A DAY
     Route: 065
     Dates: start: 2012, end: 201212
  4. CELEBREX [Suspect]
     Indication: FIBROMYALGIA
     Route: 065
  5. CYMBALTA [Suspect]
     Indication: FIBROMYALGIA
     Route: 065
  6. PRILOSEC [Concomitant]
     Route: 065
  7. CLARITHROMYCIN [Concomitant]
     Route: 065

REACTIONS (1)
  - Arthritis [Unknown]
